FAERS Safety Report 20391563 (Version 3)
Quarter: 2022Q1

REPORT INFORMATION
  Report Type: Spontaneous
  Country: US (occurrence: None)
  Receive Date: 20220128
  Receipt Date: 20220316
  Transmission Date: 20220424
  Serious: Yes (Other)
  Sender: FDA-Public Use
  Company Number: 2022A035841

PATIENT
  Sex: Female
  Weight: 88.9 kg

DRUGS (5)
  1. BUDESONIDE\FORMOTEROL\GLYCOPYRRONIUM [Suspect]
     Active Substance: BUDESONIDE\FORMOTEROL\GLYCOPYRRONIUM
     Indication: Asthma
     Dosage: 160MCG/9MCG/4.8MCG
     Route: 055
  2. FASENRA [Suspect]
     Active Substance: BENRALIZUMAB
     Route: 058
  3. SINGULAIR [Concomitant]
     Active Substance: MONTELUKAST SODIUM
  4. DICYCLOMINE [Concomitant]
     Active Substance: DICYCLOMINE HYDROCHLORIDE
  5. ALBUTEROL [Concomitant]
     Active Substance: ALBUTEROL

REACTIONS (7)
  - Lung neoplasm malignant [Unknown]
  - Dyspnoea [Unknown]
  - Weight decreased [Unknown]
  - Chest discomfort [Unknown]
  - Drug ineffective [Unknown]
  - Device use issue [Unknown]
  - Device malfunction [Unknown]
